FAERS Safety Report 9486269 (Version 2)
Quarter: 2013Q3

REPORT INFORMATION
  Report Type: Spontaneous
  Country: US (occurrence: US)
  Receive Date: 20130829
  Receipt Date: 20130903
  Transmission Date: 20140515
  Serious: Yes (Hospitalization, Other)
  Sender: FDA-Public Use
  Company Number: US-TEVA-428876USA

PATIENT
  Age: 79 Year
  Sex: Male
  Weight: 77.1 kg

DRUGS (11)
  1. FEXOFENADINE [Suspect]
     Dosage: 180 MILLIGRAM DAILY;
     Route: 048
     Dates: start: 20130821, end: 20130822
  2. GERITOL [Concomitant]
     Indication: NASOPHARYNGITIS
  3. BAYER ASPIRIN [Concomitant]
  4. TRAZODONE [Concomitant]
  5. PRAVASTATIN [Concomitant]
  6. MIRTAZAPINE [Concomitant]
  7. GLIPIZIDE [Concomitant]
  8. GABAPENTIN [Concomitant]
  9. CARVEDILOL [Concomitant]
  10. BUPROPION [Concomitant]
  11. ALPRAZOLAM [Concomitant]

REACTIONS (7)
  - Urine output increased [Recovering/Resolving]
  - Urinary incontinence [Recovering/Resolving]
  - Night sweats [Recovered/Resolved]
  - Urinary tract infection [Recovering/Resolving]
  - Prostatic disorder [Recovering/Resolving]
  - Off label use [Unknown]
  - Drug administered to patient of inappropriate age [Unknown]
